FAERS Safety Report 10558580 (Version 3)
Quarter: 2015Q3

REPORT INFORMATION
  Report Type: Report from Study
  Country: US (occurrence: US)
  Receive Date: 20141031
  Receipt Date: 20150818
  Transmission Date: 20151125
  Serious: No
  Sender: FDA-Public Use
  Company Number: US-GILEAD-2014-0120691

PATIENT
  Age: 56 Year
  Sex: Female

DRUGS (20)
  1. ADCIRCA [Concomitant]
     Active Substance: TADALAFIL
  2. ORTHOVISC [Concomitant]
     Active Substance: HYALURONIC ACID
  3. SENSIPAR [Concomitant]
     Active Substance: CINACALCET HYDROCHLORIDE
  4. LANTUS [Concomitant]
     Active Substance: INSULIN GLARGINE
  5. SYMBICORT [Concomitant]
     Active Substance: BUDESONIDE\FORMOTEROL FUMARATE DIHYDRATE
  6. VICTOZA [Concomitant]
     Active Substance: LIRAGLUTIDE
  7. ZOCOR [Concomitant]
     Active Substance: SIMVASTATIN
  8. ALBUTEROL SULFATE. [Concomitant]
     Active Substance: ALBUTEROL SULFATE
  9. NOVOLOG [Concomitant]
     Active Substance: INSULIN ASPART
  10. AMBRISENTAN [Suspect]
     Active Substance: AMBRISENTAN
     Indication: PULMONARY HYPERTENSION
     Dosage: 5 MG, QD
     Route: 065
     Dates: start: 20141010, end: 20141013
  11. ADVAIR HFA [Concomitant]
     Active Substance: FLUTICASONE PROPIONATE\SALMETEROL XINAFOATE
  12. DIGOXIN. [Concomitant]
     Active Substance: DIGOXIN
  13. DIOVAN [Concomitant]
     Active Substance: VALSARTAN
  14. KLOR-CON [Concomitant]
     Active Substance: POTASSIUM CHLORIDE
  15. ABREVA [Concomitant]
     Active Substance: DOCOSANOL
  16. MEDROL [Concomitant]
     Active Substance: METHYLPREDNISOLONE
  17. NORCO [Concomitant]
     Active Substance: ACETAMINOPHEN\HYDROCODONE BITARTRATE
  18. METHIMAZOLE. [Concomitant]
     Active Substance: METHIMAZOLE
  19. ASPIRIN                            /00002701/ [Concomitant]
     Active Substance: ASPIRIN
  20. LASIX [Concomitant]
     Active Substance: FUROSEMIDE

REACTIONS (7)
  - Eye pain [Recovering/Resolving]
  - Dizziness [Recovering/Resolving]
  - Fatigue [Recovering/Resolving]
  - Nausea [Recovering/Resolving]
  - Vomiting [Recovering/Resolving]
  - Pyrexia [Recovering/Resolving]
  - Vision blurred [Recovering/Resolving]

NARRATIVE: CASE EVENT DATE: 20141013
